FAERS Safety Report 4601265-3 (Version None)
Quarter: 2005Q2

REPORT INFORMATION
  Report Type: 
  Country: None (occurrence: None)
  Receive Date: 20050204
  Receipt Date: 20040226
  Transmission Date: 20051028
  Serious: Yes (Other)
  Sender: FDA-Public Use
  Company Number: US-SHR-03-002525

PATIENT
  Age: 30 Year
  Sex: Female

DRUGS (1)
  1. MIRENA [Suspect]
     Indication: CONTRACEPTION
     Dosage: 20 UG/DAY, CONT, INTRA-UTERINE
     Route: 015
     Dates: start: 20030101, end: 20030401

REACTIONS (3)
  - ABORTION SPONTANEOUS [None]
  - INTRA-UTERINE CONTRACEPTIVE DEVICE REMOVAL [None]
  - MEDICATION ERROR [None]
